FAERS Safety Report 8560703-4 (Version None)
Quarter: 2012Q3

REPORT INFORMATION
  Report Type: 
  Country: None (occurrence: None)
  Receive Date: 20120802
  Receipt Date: 20120730
  Transmission Date: 20120928
  Serious: Yes (Other)
  Sender: FDA-Public Use
  Company Number: PHEH2012US014927

PATIENT
  Sex: Male

DRUGS (6)
  1. BYSTOLIC [Concomitant]
     Dosage: 15 MG, UNK
  2. DIOVAN [Suspect]
     Dosage: 160 MG, BID
  3. SPIRIVA [Concomitant]
     Dosage: UNK UKN, UNK
  4. SYMBICORT [Concomitant]
     Dosage: UNK UKN, UNK
  5. TERAZOSIN HYDROCHLORIDE [Concomitant]
     Dosage: UNK UKN, UNK
  6. CLONIDINE [Concomitant]
     Dosage: 0.1 MG, UNK

REACTIONS (1)
  - AORTIC DISSECTION [None]
